FAERS Safety Report 6100775-X (Version None)
Quarter: 2009Q1

REPORT INFORMATION
  Report Type: 
  Country: None (occurrence: None)
  Receive Date: 20090303
  Receipt Date: 20090219
  Transmission Date: 20090719
  Serious: Yes (Hospitalization)
  Sender: FDA-Public Use
  Company Number: PHHY2009ES06404

PATIENT
  Age: 59 Year
  Sex: Male

DRUGS (1)
  1. TRILEPTAL [Suspect]
     Indication: IMPULSE-CONTROL DISORDER
     Dosage: 600 MG, BID
     Route: 048
     Dates: start: 20050101

REACTIONS (2)
  - HUMORAL IMMUNE DEFECT [None]
  - SELECTIVE IGG SUBCLASS DEFICIENCY [None]
